FAERS Safety Report 7755495-2 (Version None)
Quarter: 2011Q3

REPORT INFORMATION
  Report Type: 
  Country: None (occurrence: None)
  Receive Date: 20110916
  Receipt Date: 20110913
  Transmission Date: 20111222
  Serious: Yes (Death, Other)
  Sender: FDA-Public Use
  Company Number: US-PFIZER INC-2011187859

PATIENT
  Sex: Male
  Weight: 109.8 kg

DRUGS (4)
  1. RISPERDAL [Concomitant]
     Dosage: UNK
  2. PAXIL [Concomitant]
     Dosage: UNK
  3. PALIPERIDONE [Concomitant]
     Dosage: UNK
  4. NEURONTIN [Suspect]
     Indication: SCHIZOPHRENIA, PARANOID TYPE
     Dosage: 400 MG, 3X/DAY
     Route: 048
     Dates: start: 20020101

REACTIONS (2)
  - COMPLETED SUICIDE [None]
  - ASPHYXIA [None]
